FAERS Safety Report 8908144 (Version 1)
Quarter: 2012Q4

REPORT INFORMATION
  Report Type: 
  Country: US (occurrence: US)
  Receive Date: 20121114
  Receipt Date: 20121114
  Transmission Date: 20130627
  Serious: Yes (Other)
  Sender: FDA-Public Use
  Company Number: US-ASTRAZENECA-2012SE84387

PATIENT
  Age: 61 Year
  Sex: Female
  Weight: 95.3 kg

DRUGS (5)
  1. NEXIUM [Suspect]
     Indication: REFLUX LARYNGITIS
     Route: 048
     Dates: start: 2011, end: 2012
  2. NEXIUM [Suspect]
     Indication: GASTROOESOPHAGEAL REFLUX DISEASE
     Route: 048
     Dates: start: 2011, end: 2012
  3. NEXIUM [Suspect]
     Indication: REFLUX LARYNGITIS
     Route: 048
     Dates: start: 2012
  4. NEXIUM [Suspect]
     Indication: GASTROOESOPHAGEAL REFLUX DISEASE
     Route: 048
     Dates: start: 2012
  5. GABAPENTIN [Concomitant]
     Indication: NERVOUS SYSTEM DISORDER

REACTIONS (5)
  - Reflux laryngitis [Unknown]
  - Gastrooesophageal reflux disease [Unknown]
  - Nervous system disorder [Unknown]
  - Diarrhoea [Unknown]
  - Off label use [Unknown]
